APPROVED DRUG PRODUCT: CHLORTHALIDONE
Active Ingredient: CHLORTHALIDONE
Strength: 25MG
Dosage Form/Route: TABLET;ORAL
Application: A088139 | Product #001
Applicant: PUREPAC PHARMACEUTICAL CO
Approved: Jul 16, 1986 | RLD: No | RS: No | Type: DISCN